FAERS Safety Report 4448987-5 (Version None)
Quarter: 2004Q3

REPORT INFORMATION
  Report Type: 
  Country: None (occurrence: None)
  Receive Date: 20040910
  Receipt Date: 20040802
  Transmission Date: 20050211
  Serious: Yes (Hospitalization)
  Sender: FDA-Public Use
  Company Number: 2004PK01481

PATIENT
  Age: 67 Year
  Sex: Male

DRUGS (12)
  1. NEXIUM [Suspect]
     Indication: DYSPEPSIA
     Dosage: 20 MG DAILY PO
     Route: 048
     Dates: start: 20040811, end: 20040817
  2. PRIMPERAN INJ [Suspect]
     Indication: IMPAIRED GASTRIC EMPTYING
     Dosage: 10 MG DAILY PO
     Route: 048
     Dates: start: 20040811, end: 20040817
  3. FLUOROURACIL [Suspect]
     Indication: COLON CANCER
     Dates: start: 20040804, end: 20040804
  4. CAMPTOSAR [Suspect]
     Indication: COLON CANCER
     Dates: start: 20040804, end: 20040804
  5. CIPROFLOXACIN [Suspect]
     Indication: URINARY TRACT INFECTION
     Dosage: 1000 MG DAILY PO
     Route: 048
     Dates: start: 20040728, end: 20040806
  6. CITALOPRAM [Concomitant]
  7. XATRAL [Concomitant]
  8. ASPIRIN [Concomitant]
  9. LANTUS [Concomitant]
  10. LIQUEMINE [Concomitant]
  11. ACETAMINOPHEN [Concomitant]
  12. STILNOX [Concomitant]

REACTIONS (4)
  - CHILLS [None]
  - DIARRHOEA [None]
  - NEUTROPENIA [None]
  - PYREXIA [None]
